FAERS Safety Report 8277176-1 (Version None)
Quarter: 2012Q2

REPORT INFORMATION
  Report Type: 
  Country: None (occurrence: None)
  Receive Date: 20120412
  Receipt Date: 20120402
  Transmission Date: 20120825
  Serious: Yes (Hospitalization)
  Sender: FDA-Public Use
  Company Number: US-VERTEX PHARMACEUTICALS INC.-AE-2012-001747

PATIENT
  Sex: Female
  Weight: 54.026 kg

DRUGS (16)
  1. PEGASYS [Concomitant]
     Route: 058
     Dates: start: 20111110, end: 20111205
  2. LEVOTHROID [Concomitant]
  3. VALIUM [Concomitant]
  4. PEGASYS [Concomitant]
     Dates: start: 20111205
  5. HYDROCHLOROTHIAZIDE [Concomitant]
  6. PRINIVIL [Concomitant]
  7. HYDROCORTISONE [Concomitant]
  8. OMEPRAZOLE [Concomitant]
  9. ELOCON [Concomitant]
  10. RIBAVIRIN [Concomitant]
     Indication: HEPATITIS C
     Route: 048
     Dates: start: 20111006, end: 20111110
  11. RIBAVIRIN [Concomitant]
     Route: 048
     Dates: start: 20111110, end: 20111227
  12. HYDROXYZINE [Concomitant]
  13. INCIVEK [Suspect]
     Indication: HEPATITIS C
     Route: 048
     Dates: start: 20111006, end: 20111227
  14. FLUOXETINE [Concomitant]
  15. PEGASYS [Concomitant]
     Indication: HEPATITIS C
     Route: 058
     Dates: start: 20111006, end: 20111110
  16. NYSTATIN [Concomitant]

REACTIONS (18)
  - HYPOTENSION [None]
  - PANCYTOPENIA [None]
  - SWELLING FACE [None]
  - FATIGUE [None]
  - OEDEMA PERIPHERAL [None]
  - RASH PUSTULAR [None]
  - RASH PRURITIC [None]
  - SKIN EXFOLIATION [None]
  - FEELING ABNORMAL [None]
  - CONFUSIONAL STATE [None]
  - ORAL CANDIDIASIS [None]
  - BLISTER [None]
  - RASH GENERALISED [None]
  - THERMAL BURN [None]
  - RASH MACULAR [None]
  - PYREXIA [None]
  - BALANCE DISORDER [None]
  - SKIN BURNING SENSATION [None]
